FAERS Safety Report 15433708 (Version 1)
Quarter: 2018Q3

REPORT INFORMATION
  Report Type: Spontaneous
  Country: JP (occurrence: JP)
  Receive Date: 20180927
  Receipt Date: 20180927
  Transmission Date: 20181010
  Serious: Yes (Other)
  Sender: FDA-Public Use
  Company Number: JP-TEVA-2018-JP-943074

PATIENT
  Age: 85 Year
  Sex: Female

DRUGS (6)
  1. COMTAN [Concomitant]
     Active Substance: ENTACAPONE
     Route: 065
  2. NEUPRO [Concomitant]
     Active Substance: ROTIGOTINE
     Route: 065
  3. AZILECT [Suspect]
     Active Substance: RASAGILINE MESYLATE
     Dosage: .25 MILLIGRAM DAILY;
     Route: 048
     Dates: start: 201808, end: 201808
  4. AZILECT [Suspect]
     Active Substance: RASAGILINE MESYLATE
     Indication: PARKINSON^S DISEASE
     Dosage: .5 MILLIGRAM DAILY;
     Route: 048
     Dates: start: 20180720, end: 20180725
  5. NOURIAST [Concomitant]
     Active Substance: ISTRADEFYLLINE
     Route: 065
  6. NEODOPASOL [Concomitant]
     Active Substance: BENSERAZIDE HYDROCHLORIDE\LEVODOPA
     Route: 065

REACTIONS (5)
  - Dyskinesia [Recovered/Resolved]
  - Prescribed underdose [Unknown]
  - Salivary hypersecretion [Unknown]
  - Pyrexia [Recovered/Resolved]
  - Aspiration [Recovered/Resolved]

NARRATIVE: CASE EVENT DATE: 201807
